FAERS Safety Report 5592316-0 (Version None)
Quarter: 2008Q1

REPORT INFORMATION
  Report Type: 
  Country: None (occurrence: None)
  Receive Date: 20080111
  Receipt Date: 20071231
  Transmission Date: 20080703
  Serious: Yes (Hospitalization, Other)
  Sender: FDA-Public Use
  Company Number: 2008AP000026

PATIENT
  Age: 37 Year
  Sex: Female

DRUGS (5)
  1. DIVALPROEX SODIUM          (VALPROATE SEMISODIUM) [Suspect]
     Indication: MENTAL DISORDER
     Dosage: 1000 MG;PM
     Route: 048
  2. SERTRALINE [Concomitant]
  3. ZOPICLONE                          (ZOPICLONE) 7.5 MG;PO;HS [Suspect]
     Indication: MENTAL DISORDER
     Dosage: 7.5 MG;HS
     Route: 048
  4. RISPERIDONE                    (RISPERIDONE) 0.5 MG;PO;HS [Suspect]
     Indication: MENTAL DISORDER
     Dosage: 0.5 MG;HS
     Route: 048
  5. QUETIAPINE FUMARATE [Suspect]
     Indication: MENTAL DISORDER
     Dosage: 25 MG;PRN
     Route: 048

REACTIONS (16)
  - AGITATION [None]
  - ANHEDONIA [None]
  - ANXIETY [None]
  - BIPOLAR I DISORDER [None]
  - CRYING [None]
  - DECREASED APPETITE [None]
  - DRUG INEFFECTIVE [None]
  - ENERGY INCREASED [None]
  - FEELING ABNORMAL [None]
  - HYPOMANIA [None]
  - INSOMNIA [None]
  - JUDGEMENT IMPAIRED [None]
  - MEAN CELL VOLUME INCREASED [None]
  - MYALGIA [None]
  - SOCIAL AVOIDANT BEHAVIOUR [None]
  - SUICIDAL IDEATION [None]
